FAERS Safety Report 18242733 (Version 9)
Quarter: 2021Q3

REPORT INFORMATION
  Report Type: Report from Study
  Country: CO (occurrence: CO)
  Receive Date: 20200908
  Receipt Date: 20210722
  Transmission Date: 20211014
  Serious: Yes (Hospitalization, Other)
  Sender: FDA-Public Use
  Company Number: CO-SHIRE-CO202027816AA

PATIENT
  Age: 8 Year
  Sex: Female
  Weight: 38 kg

DRUGS (13)
  1. ICATIBANT [Suspect]
     Active Substance: ICATIBANT ACETATE
     Dosage: 30MG/3ML EVERY 6 HRS MAX. 3 DOSES IN 24 HRS
     Route: 058
     Dates: start: 20200823
  2. ICATIBANT [Suspect]
     Active Substance: ICATIBANT ACETATE
     Dosage: 30MG/3ML EVERY 6 HRS MAX. 3 DOSES IN 24 HRS
     Route: 058
     Dates: start: 20200824
  3. ICATIBANT [Suspect]
     Active Substance: ICATIBANT ACETATE
     Dosage: 30MG/3ML EVERY 6 HRS MAX. 3 DOSES IN 24 HRS
     Route: 058
     Dates: start: 20200824
  4. ICATIBANT [Suspect]
     Active Substance: ICATIBANT ACETATE
     Indication: HEREDITARY ANGIOEDEMA
     Dosage: 30MG/3ML EVERY 6 HRS MAX. 3 DOSES IN 24 HRS
     Route: 058
     Dates: start: 20200730
  5. ICATIBANT [Suspect]
     Active Substance: ICATIBANT ACETATE
     Dosage: 30MG/3ML EVERY 6 HRS MAX. 3 DOSES IN 24 HRS
     Route: 058
     Dates: start: 20200823
  6. ICATIBANT [Suspect]
     Active Substance: ICATIBANT ACETATE
     Dosage: 30 MG/3 ML, EVERY 6 HOURS IN CASE OF EPISODE, MAX. 3 DOSES IN 24 HOURS
     Route: 058
     Dates: start: 20200828
  7. BECLOMETHASONE [Concomitant]
     Active Substance: BECLOMETHASONE
     Dosage: 1 PUFF, Q12H
     Route: 045
  8. FEXOFENADINE [Concomitant]
     Active Substance: FEXOFENADINE HYDROCHLORIDE
     Dosage: 5 MILLILITER, 2X/DAY:BID
     Route: 048
  9. TRANEXAMIC ACID. [Concomitant]
     Active Substance: TRANEXAMIC ACID
     Dosage: 500 MILLIGRAM, 3X/DAY:TID
     Route: 065
  10. ICATIBANT [Suspect]
     Active Substance: ICATIBANT ACETATE
     Indication: HEREDITARY ANGIOEDEMA
     Dosage: 30MG/3ML EVERY 6 HRS MAX. 3 DOSES IN 24 HRS
     Route: 058
     Dates: start: 20200730
  11. ICATIBANT [Suspect]
     Active Substance: ICATIBANT ACETATE
     Dosage: 30 MG/3 ML, EVERY 6 HOURS IN CASE OF EPISODE, MAX. 3 DOSES IN 24 HOURS
     Route: 058
     Dates: start: 20200828
  12. FEXOFENADINE [Concomitant]
     Active Substance: FEXOFENADINE HYDROCHLORIDE
     Dosage: 10 MILLILITER, Q12H
     Route: 048
  13. OLOPATADINE. [Concomitant]
     Active Substance: OLOPATADINE
     Dosage: 1 GTT DROPS, QD
     Route: 065

REACTIONS (10)
  - Malaise [Not Recovered/Not Resolved]
  - Cough [Not Recovered/Not Resolved]
  - Pyrexia [Not Recovered/Not Resolved]
  - Contusion [Unknown]
  - Hereditary angioedema [Not Recovered/Not Resolved]
  - Anosmia [Recovering/Resolving]
  - Decreased appetite [Recovering/Resolving]
  - Arthralgia [Not Recovered/Not Resolved]
  - Urinary retention [Recovering/Resolving]
  - Fall [Unknown]

NARRATIVE: CASE EVENT DATE: 20200823
